FAERS Safety Report 6701231-8 (Version None)
Quarter: 2010Q2

REPORT INFORMATION
  Report Type: 
  Country: None (occurrence: None)
  Receive Date: 20100427
  Receipt Date: 20100419
  Transmission Date: 20101027
  Serious: Yes (Hospitalization)
  Sender: FDA-Public Use
  Company Number: 1000011003

PATIENT
  Age: 77 Year
  Sex: Female

DRUGS (19)
  1. NEBIVOLOL HCL [Suspect]
     Dosage: 5 MG (5 MG, 1 IN 1 D), ORAL
     Route: 048
     Dates: end: 20091107
  2. ESIDRIX [Suspect]
     Dosage: 50 MG (50 MG, 1 IN 1 D), ORAL
     Route: 048
     Dates: start: 20090801, end: 20091107
  3. AUGMENTIN '125' [Suspect]
     Dosage: 3000 MG (3000 MG,1 IN 1 D), ORAL
     Route: 048
     Dates: start: 20090801, end: 20091107
  4. CORTANCYL [Suspect]
     Indication: POLYARTERITIS NODOSA
     Dosage: 50 MG (50 MG, 1 IN 1 D), ORAL
     Route: 048
     Dates: start: 20090625, end: 20091107
  5. SINEMET [Suspect]
     Indication: PARKINSON'S DISEASE
     Dosage: 600 MG/60 MG (1 IN 1 D),ORAL
     Route: 048
     Dates: end: 20091107
  6. ALPRAZOLAM [Suspect]
     Dosage: 0.625 MG (0.625 MG,1 IN 1 D),ORAL
     Route: 048
     Dates: end: 20091107
  7. OMEPRAZOLE [Suspect]
     Dosage: 40 MG (40 MG, 1 IN 1 D),ORAL
     Route: 048
     Dates: end: 20091107
  8. AMLODIPINE [Suspect]
     Dosage: 5 MG (5 MG, 1 IN 1 D) ,ORAL
     Route: 048
     Dates: end: 20091107
  9. CAPTOPRIL [Suspect]
     Dosage: 100 MG (100 MG,1 IN 1 D), ORAL
     Route: 048
     Dates: start: 20090801, end: 20091107
  10. NORSET [Suspect]
     Dosage: 15 MG (15 MG, 1 IN 1 D),ORAL
     Route: 048
     Dates: end: 20091107
  11. MOTILIUM [Concomitant]
  12. DOLIPRANE [Concomitant]
  13. TARDYFERON B9 [Concomitant]
  14. ZOLPIDEM [Concomitant]
  15. DIFFU K [Concomitant]
  16. CAPTOPRIL AND HYDROCHLOROTHIAZIDE [Concomitant]
  17. CACIT D3 [Concomitant]
  18. BONIVA [Concomitant]
  19. FORLAX [Concomitant]

REACTIONS (17)
  - CHOLESTASIS [None]
  - CUSHINGOID [None]
  - CYTOLYTIC HEPATITIS [None]
  - DISORIENTATION [None]
  - DYSKINESIA [None]
  - FALL [None]
  - GENERAL PHYSICAL HEALTH DETERIORATION [None]
  - HAEMATOMA [None]
  - HEPATIC PAIN [None]
  - HEPATITIS CHOLESTATIC [None]
  - LIVER DISORDER [None]
  - LOSS OF CONSCIOUSNESS [None]
  - OEDEMA PERIPHERAL [None]
  - ORTHOSTATIC HYPERTENSION [None]
  - PARKINSONISM [None]
  - PNEUMOTHORAX [None]
  - PSYCHOMOTOR RETARDATION [None]
